FAERS Safety Report 9381794 (Version 2)
Quarter: 2014Q1

REPORT INFORMATION
  Report Type: Report from Study
  Country: BE (occurrence: BE)
  Receive Date: 20130703
  Receipt Date: 20140127
  Transmission Date: 20141002
  Serious: Yes (Life-Threatening, Hospitalization)
  Sender: FDA-Public Use
  Company Number: PHHO2013BE008730

PATIENT
  Sex: 0

DRUGS (4)
  1. BLINDED AFINITOR [Suspect]
     Indication: ASTROCYTOMA, LOW GRADE
     Dosage: CODE NOT BROKEN
     Route: 048
     Dates: start: 20100714, end: 20120629
  2. BLINDED NO TREATMENT RECEIVED [Suspect]
     Indication: ASTROCYTOMA, LOW GRADE
     Dosage: CODE NOT BROKEN
     Route: 048
     Dates: start: 20100714, end: 20120629
  3. BLINDED PLACEBO [Suspect]
     Indication: ASTROCYTOMA, LOW GRADE
     Dosage: CODE NOT BROKEN
     Route: 048
     Dates: start: 20100714, end: 20120629
  4. RAD001 [Suspect]
     Indication: ASTROCYTOMA, LOW GRADE

REACTIONS (1)
  - Lymphadenopathy [Not Recovered/Not Resolved]
